FAERS Safety Report 16982778 (Version 2)
Quarter: 2019Q4

REPORT INFORMATION
  Report Type: Spontaneous
  Country: US (occurrence: US)
  Receive Date: 20191101
  Receipt Date: 20191112
  Transmission Date: 20200122
  Serious: Yes (Congenital Anomaly, Other)
  Sender: FDA-Public Use
  Company Number: US-BAYER-2019-197044

PATIENT

DRUGS (5)
  1. AZATHIOPRINE. [Suspect]
     Active Substance: AZATHIOPRINE
  2. NIFEDIPINE. [Suspect]
     Active Substance: NIFEDIPINE
  3. BELIMUMAB [Suspect]
     Active Substance: BELIMUMAB
  4. HYDROXYCHLOROQUINE [Suspect]
     Active Substance: HYDROXYCHLOROQUINE
  5. ACETYLSALICYLIC ACID (PAIN AND FEVER) [Suspect]
     Active Substance: ASPIRIN
     Indication: LUPUS NEPHRITIS

REACTIONS (3)
  - Premature baby [None]
  - Foetal exposure during pregnancy [None]
  - Chondrodystrophy [None]
